FAERS Safety Report 24760849 (Version 1)
Quarter: 2024Q4

REPORT INFORMATION
  Report Type: Spontaneous
  Country: ES (occurrence: ES)
  Receive Date: 20241220
  Receipt Date: 20241220
  Transmission Date: 20250114
  Serious: Yes (Other)
  Sender: AMGEN
  Company Number: ES-AMGEN-ESPSP2024245853

PATIENT
  Age: 66 Year
  Sex: Male

DRUGS (6)
  1. BEVACIZUMAB [Suspect]
     Active Substance: BEVACIZUMAB
     Indication: Hepatocellular carcinoma
     Dosage: UNK
     Route: 065
  2. ATEZOLIZUMAB [Suspect]
     Active Substance: ATEZOLIZUMAB
     Indication: Hepatocellular carcinoma
     Route: 065
  3. MEROPENEM [Concomitant]
     Active Substance: MEROPENEM
  4. AMPICILLIN [Concomitant]
     Active Substance: AMPICILLIN
  5. ACYCLOVIR [Concomitant]
     Active Substance: ACYCLOVIR
  6. LENVATINIB [Concomitant]
     Active Substance: LENVATINIB

REACTIONS (2)
  - Immune-mediated encephalitis [Recovered/Resolved]
  - Off label use [Unknown]
